FAERS Safety Report 7231418-X (Version None)
Quarter: 2011Q1

REPORT INFORMATION
  Report Type: 
  Country: None (occurrence: None)
  Receive Date: 20110118
  Receipt Date: 20110106
  Transmission Date: 20110831
  Serious: Yes (Hospitalization)
  Sender: FDA-Public Use
  Company Number: US-ASTRAZENECA-2011SE01150

PATIENT
  Age: 88 Year
  Sex: Female
  Weight: 60.8 kg

DRUGS (2)
  1. CRESTOR [Suspect]
     Indication: ARTERIAL OCCLUSIVE DISEASE
     Route: 048
  2. TRAMADOL [Concomitant]

REACTIONS (4)
  - PAIN IN EXTREMITY [None]
  - SPINAL COMPRESSION FRACTURE [None]
  - MUSCULOSKELETAL STIFFNESS [None]
  - HYPOAESTHESIA [None]
